FAERS Safety Report 18545546 (Version 1)
Quarter: 2020Q4

REPORT INFORMATION
  Report Type: Spontaneous
  Country: NL (occurrence: NL)
  Receive Date: 20201125
  Receipt Date: 20201125
  Transmission Date: 20210114
  Serious: Yes (Other)
  Sender: FDA-Public Use
  Company Number: NL-TEVA-2020-NL-1851677

PATIENT
  Sex: Female

DRUGS (2)
  1. NITROFURANTOINE CAPSULE 50MG / BRAND NAME NOT SPECIFIED [Suspect]
     Active Substance: NITROFURANTOIN
     Indication: CYSTITIS
     Dosage: 200 MILLIGRAM DAILY; THERAPY END DATE: ASKED BUT UNKNOWN
     Dates: start: 202008
  2. FERROFUMARAAT TABLET 200MG / BRAND NAME NOT SPECIFIED [Concomitant]
     Active Substance: FERROUS FUMARATE
     Dosage: THERAPY START DATE AND END DATE: ASKED BUT UNKNOWN

REACTIONS (1)
  - Hypersensitivity vasculitis [Recovered/Resolved]
